FAERS Safety Report 7759995-0 (Version None)
Quarter: 2011Q3

REPORT INFORMATION
  Report Type: 
  Country: None (occurrence: None)
  Receive Date: 20110919
  Receipt Date: 20110914
  Transmission Date: 20111222
  Serious: Yes (Life-Threatening, Other)
  Sender: FDA-Public Use
  Company Number: US-ASTRAZENECA-2011SE35060

PATIENT
  Age: 69 Year
  Sex: Male

DRUGS (15)
  1. GUAIFENESIN [Concomitant]
     Indication: COUGH
     Route: 048
  2. TERAZOSIN HCL [Concomitant]
     Route: 048
  3. LISINOPRIL [Suspect]
     Indication: HYPERTENSION
     Route: 048
  4. GUAIFENESIN [Concomitant]
     Dosage: AS NEEDED
     Route: 048
  5. POTASSIUM CITRATE [Concomitant]
     Indication: HYPOKALAEMIA
     Dosage: 10 MEQ, THREE TIMES A DAY
     Route: 048
  6. MEGACE [Concomitant]
     Dosage: 625 MG/5ML, 5 ML DAILY
     Route: 048
  7. METOPROLOL TARTRATE [Suspect]
     Route: 048
  8. CALCIUM CARBONATE [Concomitant]
     Route: 048
  9. ZOLOFT [Concomitant]
     Route: 048
  10. ROSUVASTATIN [Suspect]
     Route: 048
  11. VANDETANIB [Suspect]
     Indication: THYROID CANCER
     Route: 048
     Dates: start: 20110504, end: 20110602
  12. ZOLOFT [Concomitant]
     Indication: DEPRESSION
     Route: 048
  13. TERAZOSIN HCL [Concomitant]
     Indication: BENIGN PROSTATIC HYPERPLASIA
     Route: 048
  14. ISOSORBIDE MONONITRATE [Concomitant]
     Indication: CHEST PAIN
     Route: 048
  15. LEVOTHROID [Concomitant]
     Route: 048

REACTIONS (19)
  - FATIGUE [None]
  - ACNE [None]
  - DEPRESSION [None]
  - DIARRHOEA [None]
  - FALL [None]
  - WEIGHT DECREASED [None]
  - HYPOCALCAEMIA [None]
  - DECREASED APPETITE [None]
  - BALANCE DISORDER [None]
  - HEART RATE IRREGULAR [None]
  - CHEST PAIN [None]
  - DECREASED INTEREST [None]
  - RASH [None]
  - HYPOKALAEMIA [None]
  - ASTHENIA [None]
  - FEELING HOT [None]
  - DYSPNOEA [None]
  - COUGH [None]
  - ANXIETY [None]
